FAERS Safety Report 25454309 (Version 1)
Quarter: 2025Q2

REPORT INFORMATION
  Report Type: Spontaneous
  Country: CN (occurrence: CN)
  Receive Date: 20250619
  Receipt Date: 20250619
  Transmission Date: 20250717
  Serious: Yes (Other)
  Sender: ABBVIE
  Company Number: CN-ABBVIE-6327508

PATIENT
  Age: 41 Year
  Sex: Male
  Weight: 66 kg

DRUGS (2)
  1. VENETOCLAX [Suspect]
     Active Substance: VENETOCLAX
     Indication: Chemotherapy
     Dosage: 400 MG EACH TIME, ORALLY, ONCE A DAY (FROM 21-MAY-2025 TO 27-MAY-2025.)
     Route: 048
     Dates: start: 20250521, end: 20250527
  2. CYTARABINE [Suspect]
     Active Substance: CYTARABINE
     Indication: Chemotherapy
     Dosage: HIGH-DOSE CYTARABINE, 5.3 G EACH TIME, ONCE EVERY 12 HOURS, INTRAVENOUS PUMPING (21-MAY-2025, 23-...
     Route: 065
     Dates: start: 20250521, end: 20250525

REACTIONS (2)
  - Myelosuppression [Recovered/Resolved]
  - Pyrexia [Unknown]

NARRATIVE: CASE EVENT DATE: 20250531
